FAERS Safety Report 23206648 (Version 1)
Quarter: 2023Q4

REPORT INFORMATION
  Report Type: Other
  Country: US (occurrence: US)
  Receive Date: 20231120
  Receipt Date: 20231120
  Transmission Date: 20240109
  Serious: No
  Sender: FDA-Public Use
  Company Number: US-UROVANT SCIENCES GMBH-202307-URV-001454

PATIENT
  Sex: Male

DRUGS (3)
  1. GEMTESA [Suspect]
     Active Substance: VIBEGRON
     Indication: Product used for unknown indication
     Dosage: UNK
     Route: 048
  2. PEPCID                             /00706001/ [Concomitant]
     Indication: Gastrooesophageal reflux disease
     Dosage: UNK
     Route: 065
  3. PRILOSEC [Concomitant]
     Active Substance: OMEPRAZOLE MAGNESIUM
     Indication: Gastrooesophageal reflux disease
     Dosage: UNK
     Route: 065

REACTIONS (1)
  - No adverse event [Unknown]
